FAERS Safety Report 4360582-5 (Version None)
Quarter: 2004Q2

REPORT INFORMATION
  Report Type: 
  Country: None (occurrence: None)
  Receive Date: 20040519
  Receipt Date: 20040503
  Transmission Date: 20050107
  Serious: Yes (Other)
  Sender: FDA-Public Use
  Company Number: PHEH2004US04856

PATIENT
  Age: 52 Year
  Sex: Female

DRUGS (13)
  1. ZELNORM [Suspect]
     Indication: IRRITABLE BOWEL SYNDROME
     Dosage: 6 MG, BID
     Route: 048
     Dates: start: 20040412, end: 20040427
  2. SYNTHROID [Concomitant]
  3. PREMARIN [Concomitant]
  4. COREG [Concomitant]
  5. DIGITEK [Concomitant]
  6. ENALAPRIL MALEATE [Concomitant]
  7. ZYRTEC [Concomitant]
  8. CELEBREX [Concomitant]
  9. BACLOFEN [Concomitant]
  10. NEXIUM                                  /UNK/ [Concomitant]
  11. PHENERGAN [Concomitant]
  12. CARAFATE [Concomitant]
  13. REGLAN                                  /USA/ [Concomitant]

REACTIONS (21)
  - ABDOMINAL TENDERNESS [None]
  - ANOREXIA [None]
  - ARTHRALGIA [None]
  - BACK PAIN [None]
  - BIOPSY COLON ABNORMAL [None]
  - BLOOD URINE [None]
  - COLITIS ISCHAEMIC [None]
  - COLONOSCOPY ABNORMAL [None]
  - DIARRHOEA [None]
  - DIZZINESS [None]
  - DYSPEPSIA [None]
  - FATIGUE [None]
  - FLATULENCE [None]
  - HEADACHE [None]
  - MYALGIA [None]
  - NAUSEA [None]
  - RECTAL HAEMORRHAGE [None]
  - REGURGITATION OF FOOD [None]
  - RHINORRHOEA [None]
  - SINUS CONGESTION [None]
  - WHITE BLOOD CELL COUNT INCREASED [None]
